FAERS Safety Report 13905991 (Version 1)
Quarter: 2017Q3

REPORT INFORMATION
  Report Type: Report from Study
  Country: US (occurrence: US)
  Receive Date: 20170825
  Receipt Date: 20170825
  Transmission Date: 20171127
  Serious: Yes (Hospitalization)
  Sender: FDA-Public Use
  Company Number: US-THERATECHNOLOGIES, INC.-TH-2014-00112

PATIENT

DRUGS (19)
  1. PREMARIN [Concomitant]
     Active Substance: ESTROGENS, CONJUGATED
     Indication: MENOPAUSE
     Dosage: .625 MG MILLIGRAM(S), QD
     Route: 048
     Dates: start: 20071101
  2. DEPAKOTE [Concomitant]
     Active Substance: DIVALPROEX SODIUM
     Indication: BIPOLAR DISORDER
     Dosage: 500 MG MILLIGRAM(S), BID
     Route: 048
     Dates: start: 20071119
  3. LOMOTIL [Concomitant]
     Active Substance: ATROPINE SULFATE\DIPHENOXYLATE HYDROCHLORIDE
     Indication: DIARRHOEA
     Dosage: 2 TABLETS 4 TIMES DAILY AS NEEDED
     Route: 048
     Dates: start: 20110420
  4. LEVOTHRYOXINE [Concomitant]
     Active Substance: LEVOTHYROXINE
     Indication: HYPOTHYROIDISM
     Dosage: .025 MG MILLIGRAM(S), QD
     Route: 048
     Dates: start: 20071214
  5. PULMICORT TURBUHALER [Concomitant]
     Active Substance: BUDESONIDE
     Indication: CHRONIC OBSTRUCTIVE PULMONARY DISEASE
     Dosage: 1 PUFF, QD
     Route: 048
     Dates: start: 20090728
  6. NORVIR [Concomitant]
     Active Substance: RITONAVIR
     Indication: HIV INFECTION
     Dosage: 100 MG MILLIGRAM(S), QD
     Route: 048
     Dates: start: 20071018
  7. LORATADINE. [Concomitant]
     Active Substance: LORATADINE
     Indication: RHINITIS ALLERGIC
     Dosage: 10 MG MILLIGRAM(S), QD
     Route: 048
     Dates: start: 20090313
  8. FLONASE [Concomitant]
     Active Substance: FLUTICASONE PROPIONATE
     Indication: RHINITIS ALLERGIC
     Dosage: 1 SPRAY, QD
     Route: 045
     Dates: start: 20080118
  9. ISENTRESS [Concomitant]
     Active Substance: RALTEGRAVIR POTASSIUM
     Indication: HIV INFECTION
     Dosage: 400 MG MILLIGRAM(S), BID
     Route: 048
     Dates: start: 20090326
  10. ACYCLOVIR. [Concomitant]
     Active Substance: ACYCLOVIR
     Indication: GENITAL HERPES
     Dosage: 400 MG MILLIGRAM(S), TID
     Route: 048
     Dates: start: 20080222
  11. VENTOLIN HFA [Concomitant]
     Active Substance: ALBUTEROL SULFATE
     Indication: CHRONIC OBSTRUCTIVE PULMONARY DISEASE
     Dosage: 2 PUFFS EVERY 8 HOURS AS NEEDED
     Dates: start: 20070924
  12. METHADONE [Concomitant]
     Active Substance: METHADONE HYDROCHLORIDE
     Indication: RHEUMATOID ARTHRITIS
     Dosage: 10 MG MILLIGRAM(S), BID
     Route: 048
     Dates: start: 20130312
  13. PROTONIX [Concomitant]
     Active Substance: PANTOPRAZOLE SODIUM
     Indication: GASTROOESOPHAGEAL REFLUX DISEASE
     Dosage: 40 MG MILLIGRAM(S), QD
     Route: 048
     Dates: start: 20120503
  14. SPRIONOLACTONE [Concomitant]
     Indication: CHRONIC KIDNEY DISEASE
     Dosage: 25 MG MILLIGRAM(S), QD
     Route: 048
     Dates: start: 20120813
  15. GEMFIBROZIL. [Concomitant]
     Active Substance: GEMFIBROZIL
     Indication: HYPERLIPIDAEMIA
     Dosage: 600 MG MILLIGRAM(S), QD
     Route: 048
     Dates: start: 20140603
  16. EGRIFTA [Suspect]
     Active Substance: TESAMORELIN
     Indication: LIPOHYPERTROPHY
     Dosage: UNK UNK, UNK
  17. GABAPENTIN. [Concomitant]
     Active Substance: GABAPENTIN
     Indication: NEUROPATHY PERIPHERAL
     Dosage: 300 MG MILLIGRAM(S), QD
     Route: 048
     Dates: start: 20110920
  18. TRAZODONE [Concomitant]
     Active Substance: TRAZODONE HYDROCHLORIDE
     Indication: INSOMNIA
     Dosage: 100 MG MILLIGRAM(S), QD
     Route: 048
     Dates: start: 20071112
  19. PREZISTA [Concomitant]
     Active Substance: DARUNAVIR ETHANOLATE
     Indication: HIV INFECTION
     Dosage: 400 MG MILLIGRAM(S), QD
     Route: 048
     Dates: start: 20071112

REACTIONS (1)
  - Pneumonia [Recovered/Resolved]

NARRATIVE: CASE EVENT DATE: 20140628
